FAERS Safety Report 25529552 (Version 1)
Quarter: 2025Q3

REPORT INFORMATION
  Report Type: Spontaneous
  Country: US (occurrence: None)
  Receive Date: 20250708
  Receipt Date: 20250708
  Transmission Date: 20251021
  Serious: Yes (unspecified)
  Sender: FDA-CTU
  Company Number: None

PATIENT
  Sex: Female

DRUGS (1)
  1. CIPROFLOXACIN [Suspect]
     Active Substance: CIPROFLOXACIN
     Indication: Urinary tract infection
     Dates: start: 20250509, end: 20250513

REACTIONS (7)
  - Arthralgia [None]
  - Neuropathy peripheral [None]
  - Blepharospasm [None]
  - Ligament sprain [None]
  - Tendon pain [None]
  - Gait disturbance [None]
  - Ehlers-Danlos syndrome [None]

NARRATIVE: CASE EVENT DATE: 20250611
